FAERS Safety Report 25961852 (Version 1)
Quarter: 2025Q4

REPORT INFORMATION
  Report Type: Spontaneous
  Country: CN (occurrence: CN)
  Receive Date: 20251027
  Receipt Date: 20251027
  Transmission Date: 20260117
  Serious: Yes (Life-Threatening, Other)
  Sender: ACCORD
  Company Number: CN-Accord-510235

PATIENT
  Age: 56 Year
  Sex: Female

DRUGS (9)
  1. DECITABINE [Suspect]
     Active Substance: DECITABINE
     Indication: Haemophagocytic lymphohistiocytosis
     Dosage: ON DAYS 1-5
     Dates: start: 20211105, end: 202201
  2. PACLITAXEL [Suspect]
     Active Substance: PACLITAXEL
     Indication: Haemophagocytic lymphohistiocytosis
     Dosage: ON DAY 5
     Dates: start: 20211105, end: 202201
  3. LENALIDOMIDE [Suspect]
     Active Substance: LENALIDOMIDE
     Indication: Haemophagocytic lymphohistiocytosis
     Dates: start: 20211105, end: 202201
  4. DOXORUBICIN [Suspect]
     Active Substance: DOXORUBICIN
     Indication: Diffuse large B-cell lymphoma refractory
     Dosage: ON DAY 1
     Dates: start: 20211105, end: 202201
  5. ZANUBRUTINIB [Suspect]
     Active Substance: ZANUBRUTINIB
     Indication: Diffuse large B-cell lymphoma refractory
     Dosage: 160 MG TWICE DAILY ORALLY ON DAYS 1-14
     Route: 048
     Dates: start: 20211105, end: 202201
  6. LENALIDOMIDE [Suspect]
     Active Substance: LENALIDOMIDE
     Indication: Diffuse large B-cell lymphoma refractory
     Dates: start: 20211105, end: 202201
  7. DECITABINE [Suspect]
     Active Substance: DECITABINE
     Indication: Diffuse large B-cell lymphoma refractory
     Dosage: ON DAYS 1-5
     Dates: start: 20211105, end: 202201
  8. ZANUBRUTINIB [Suspect]
     Active Substance: ZANUBRUTINIB
     Indication: Haemophagocytic lymphohistiocytosis
     Dosage: 160 MG TWICE DAILY ORALLY ON DAYS 1-14
     Route: 048
     Dates: start: 20211105, end: 202201
  9. PACLITAXEL [Suspect]
     Active Substance: PACLITAXEL
     Indication: Diffuse large B-cell lymphoma refractory
     Dosage: ON DAY 5
     Dates: start: 20211105, end: 202201

REACTIONS (3)
  - Myelosuppression [Unknown]
  - Perineal ulceration [Unknown]
  - Skin ulcer [Unknown]

NARRATIVE: CASE EVENT DATE: 20210101
